FAERS Safety Report 21649336 (Version 1)
Quarter: 2022Q4

REPORT INFORMATION
  Report Type: Report from Study
  Country: US (occurrence: US)
  Receive Date: 20221128
  Receipt Date: 20221128
  Transmission Date: 20230112
  Serious: No
  Sender: FDA-Public Use
  Company Number: US-ABBVIE-4196728

PATIENT
  Age: 25 Year
  Sex: Female

DRUGS (1)
  1. HUMIRA [Suspect]
     Active Substance: ADALIMUMAB
     Indication: Crohn^s disease
     Dosage: CITRATE FREE ?STRENGTH: 40 MILLIGRAM
     Route: 058
     Dates: start: 20220610

REACTIONS (7)
  - SARS-CoV-2 test positive [Recovered/Resolved]
  - Headache [Unknown]
  - Nausea [Unknown]
  - Respiratory tract congestion [Unknown]
  - Vomiting [Unknown]
  - Pain [Unknown]
  - Pyrexia [Unknown]

NARRATIVE: CASE EVENT DATE: 20221108
